APPROVED DRUG PRODUCT: OCTREOTIDE ACETATE
Active Ingredient: OCTREOTIDE ACETATE
Strength: EQ 0.5MG BASE/ML
Dosage Form/Route: INJECTABLE;INJECTION
Application: A077372 | Product #003
Applicant: SUN PHARMACEUTICAL INDUSTRIES LTD
Approved: Aug 14, 2007 | RLD: No | RS: No | Type: DISCN